FAERS Safety Report 18946819 (Version 1)
Quarter: 2021Q1

REPORT INFORMATION
  Report Type: Spontaneous
  Country: IL (occurrence: IL)
  Receive Date: 20210226
  Receipt Date: 20210226
  Transmission Date: 20210420
  Serious: Yes (Other)
  Sender: FDA-Public Use
  Company Number: IL-SA-2021SA065829

PATIENT
  Age: 66 Year
  Sex: Male

DRUGS (1)
  1. RENVELA [Suspect]
     Active Substance: SEVELAMER CARBONATE
     Dosage: 7200 MG
     Dates: start: 20200601

REACTIONS (5)
  - Necrosis ischaemic [Unknown]
  - Gastrointestinal haemorrhage [Unknown]
  - Small intestinal perforation [Unknown]
  - Pain [Unknown]
  - Gastric mucosal lesion [Unknown]
